FAERS Safety Report 8197189-8 (Version None)
Quarter: 2012Q1

REPORT INFORMATION
  Report Type: 
  Country: None (occurrence: None)
  Receive Date: 20120309
  Receipt Date: 20120306
  Transmission Date: 20120608
  Serious: Yes (Other)
  Sender: FDA-Public Use
  Company Number: US-PFIZER INC-2012060287

PATIENT
  Sex: Male
  Weight: 84.354 kg

DRUGS (5)
  1. NEURONTIN [Suspect]
     Indication: VENTRICULO-CARDIAC SHUNT
  2. NEURONTIN [Suspect]
     Indication: ARNOLD-CHIARI MALFORMATION
     Dosage: 300 MG IN MORNING, 300 MG IN AFTERNOON, 400 MG AT NIGHT
     Route: 048
  3. ACETYLSALICYLIC ACID [Concomitant]
     Dosage: UNK
  4. TRAMADOL [Concomitant]
     Dosage: UNK
  5. XANAX [Concomitant]
     Dosage: UNK

REACTIONS (3)
  - NEUROPATHY PERIPHERAL [None]
  - HYPOTHYROIDISM [None]
  - FIBROMYALGIA [None]
